FAERS Safety Report 6766696-4 (Version None)
Quarter: 2010Q2

REPORT INFORMATION
  Report Type: 
  Country: None (occurrence: None)
  Receive Date: 20100611
  Receipt Date: 20100604
  Transmission Date: 20101027
  Serious: Yes (Hospitalization)
  Sender: FDA-Public Use
  Company Number: US-JNJFOC-20100602281

PATIENT
  Sex: Male
  Weight: 79.38 kg

DRUGS (2)
  1. DURAGESIC-100 [Suspect]
     Indication: BACK PAIN
     Route: 062
  2. DURAGESIC-100 [Suspect]
     Route: 062

REACTIONS (10)
  - BACK PAIN [None]
  - CHILLS [None]
  - DRUG INEFFECTIVE [None]
  - INTERVERTEBRAL DISC DISORDER [None]
  - INTRACRANIAL HYPOTENSION [None]
  - MENINGITIS [None]
  - MUSCLE SPASMS [None]
  - PAIN IN EXTREMITY [None]
  - PRODUCT QUALITY ISSUE [None]
  - RENAL MASS [None]
